FAERS Safety Report 14928638 (Version 1)
Quarter: 2018Q2

REPORT INFORMATION
  Report Type: Spontaneous
  Country: DE (occurrence: DE)
  Receive Date: 20180523
  Receipt Date: 20180523
  Transmission Date: 20180711
  Serious: Yes (Hospitalization)
  Sender: FDA-Public Use
  Company Number: DE-PFIZER INC-2018209763

PATIENT
  Age: 74 Year
  Sex: Male

DRUGS (12)
  1. NEULASTA [Suspect]
     Active Substance: PEGFILGRASTIM
     Dosage: UNK
  2. CLEXANE [Concomitant]
     Active Substance: ENOXAPARIN SODIUM
     Dosage: 0.4 MG, 1X/DAY  (1-0-0-0)
     Route: 058
  3. PANTOPRAZOL [Concomitant]
     Active Substance: PANTOPRAZOLE SODIUM
     Dosage: 40 MG, 1X/DAY  (0-1-0-0)
  4. MACROGOL [Concomitant]
     Active Substance: POLYETHYLENE GLYCOLS
     Dosage: UNK, 2X/DAY  (1-1-0-0)
  5. FUROSEMIDE. [Concomitant]
     Active Substance: FUROSEMIDE
     Dosage: 20 MG, (1-0.5-0-0)
  6. CARBOPLATIN. [Suspect]
     Active Substance: CARBOPLATIN
     Dosage: UNK
  7. ALLOPURINOL. [Concomitant]
     Active Substance: ALLOPURINOL
     Dosage: 300 MG, 1X/DAY  (1-0-0-0)
  8. ETOPOSIDE. [Suspect]
     Active Substance: ETOPOSIDE
     Dosage: UNK
  9. METAMIZOLE [Concomitant]
     Active Substance: METAMIZOLE
     Dosage: 20 GTT, 3X/DAY  (20-20-20-0)
  10. PAMIDRONIC ACID [Suspect]
     Active Substance: PAMIDRONIC ACID
     Dosage: 90 MG, EVERY 4 WEEKS
  11. CARVEDILOL. [Concomitant]
     Active Substance: CARVEDILOL
     Dosage: 25 MG, 2X/DAY  (1-0-0-1)
  12. REKAWAN [Concomitant]
     Active Substance: POTASSIUM CHLORIDE
     Dosage: UNK MG, 2X/DAY  (1-0-1-0)

REACTIONS (3)
  - Diarrhoea [Unknown]
  - Nausea [Unknown]
  - Tachycardia [Unknown]
